FAERS Safety Report 5407608-5 (Version None)
Quarter: 2007Q3

REPORT INFORMATION
  Report Type: 
  Country: None (occurrence: None)
  Receive Date: 20070807
  Receipt Date: 20070731
  Transmission Date: 20080115
  Serious: Yes (Hospitalization)
  Sender: FDA-Public Use
  Company Number: IT-ABBOTT-07P-083-0376201-00

PATIENT
  Age: 51 Year
  Sex: Female

DRUGS (1)
  1. ECTIVA [Suspect]
     Indication: OBESITY
     Route: 048
     Dates: start: 20070614, end: 20070621

REACTIONS (2)
  - HYPERTENSION [None]
  - HYPONATRAEMIA [None]
